FAERS Safety Report 20049685 (Version 3)
Quarter: 2023Q2

REPORT INFORMATION
  Report Type: Spontaneous
  Country: US (occurrence: US)
  Receive Date: 20211109
  Receipt Date: 20230511
  Transmission Date: 20230721
  Serious: Yes (Death, Hospitalization, Other)
  Sender: FDA-Public Use
  Company Number: US-GILEAD-2021-0555182

PATIENT
  Age: 53 Year
  Sex: Male
  Weight: 99.773 kg

DRUGS (7)
  1. TRUVADA [Suspect]
     Active Substance: EMTRICITABINE\TENOFOVIR DISOPROXIL FUMARATE
     Indication: HIV infection
     Dosage: UNK
     Route: 048
     Dates: start: 2013, end: 20180105
  2. TIVICAY [Concomitant]
     Active Substance: DOLUTEGRAVIR SODIUM
  3. ZIAGEN [Concomitant]
     Active Substance: ABACAVIR SULFATE
  4. ABACAVIR [Concomitant]
     Active Substance: ABACAVIR
  5. PRAVASTATIN [Concomitant]
     Active Substance: PRAVASTATIN
  6. CARVEDILOL [Concomitant]
     Active Substance: CARVEDILOL
  7. SPIRONOLACTONE [Concomitant]
     Active Substance: SPIRONOLACTONE

REACTIONS (14)
  - Leukoencephalopathy [Fatal]
  - Renal failure [Not Recovered/Not Resolved]
  - Chronic kidney disease [Not Recovered/Not Resolved]
  - Renal failure [Not Recovered/Not Resolved]
  - Hypokalaemia [Recovered/Resolved]
  - End stage renal disease [Not Recovered/Not Resolved]
  - Emotional distress [Unknown]
  - Anhedonia [Unknown]
  - Anxiety [Unknown]
  - Pain [Unknown]
  - Renal mass [Unknown]
  - Renal disorder [Unknown]
  - Anaemia [Recovered/Resolved]
  - Viral load decreased [Unknown]

NARRATIVE: CASE EVENT DATE: 20150401
